FAERS Safety Report 26017830 (Version 1)
Quarter: 2025Q4

REPORT INFORMATION
  Report Type: Spontaneous
  Country: US (occurrence: US)
  Receive Date: 20251110
  Receipt Date: 20251110
  Transmission Date: 20260117
  Serious: No
  Sender: BIOVITRUM
  Company Number: US-BIOVITRUM-2025-US-015141

PATIENT
  Age: 58 Year
  Sex: Female

DRUGS (1)
  1. KINERET [Suspect]
     Active Substance: ANAKINRA
     Indication: Product used for unknown indication
     Dosage: DAILY

REACTIONS (2)
  - Incorrect dose administered [Unknown]
  - Dyskinesia [Unknown]
